FAERS Safety Report 24988038 (Version 1)
Quarter: 2025Q1

REPORT INFORMATION
  Report Type: Spontaneous
  Country: IE (occurrence: IE)
  Receive Date: 20250220
  Receipt Date: 20250220
  Transmission Date: 20250408
  Serious: Yes (Hospitalization, Other)
  Sender: ALKEM
  Company Number: IE-ALKEM LABORATORIES LIMITED-IE-ALKEM-2025-01749

PATIENT
  Sex: Female
  Weight: 1.8 kg

DRUGS (1)
  1. METFORMIN HYDROCHLORIDE [Suspect]
     Active Substance: METFORMIN HYDROCHLORIDE
     Indication: Product used for unknown indication
     Route: 064

REACTIONS (5)
  - Neonatal respiratory distress syndrome [Unknown]
  - Foetal growth restriction [Unknown]
  - Premature baby [Unknown]
  - Foetal exposure during pregnancy [Unknown]
  - Low birth weight baby [Unknown]
